FAERS Safety Report 11233302 (Version 7)
Quarter: 2015Q3

REPORT INFORMATION
  Report Type: Spontaneous
  Country: CA (occurrence: CA)
  Receive Date: 20150702
  Receipt Date: 20150930
  Transmission Date: 20151125
  Serious: Yes (Other)
  Sender: FDA-Public Use
  Company Number: CA-ABBVIE-15K-028-1416672-00

PATIENT
  Age: 31 Year
  Sex: Female
  Weight: 70 kg

DRUGS (5)
  1. HUMIRA [Suspect]
     Active Substance: ADALIMUMAB
     Route: 058
     Dates: start: 201507
  2. HUMIRA [Suspect]
     Active Substance: ADALIMUMAB
     Dosage: FOURTH LOADING DOSE
     Route: 058
     Dates: start: 20150629, end: 20150629
  3. HUMIRA [Suspect]
     Active Substance: ADALIMUMAB
     Route: 058
     Dates: start: 20150805
  4. HUMIRA [Suspect]
     Active Substance: ADALIMUMAB
     Indication: CROHN^S DISEASE
     Dosage: FIRST 2 PENS OF LOADING DOSE
     Route: 058
     Dates: start: 20150624, end: 20150624
  5. HUMIRA [Suspect]
     Active Substance: ADALIMUMAB
     Dosage: THIRD PEN OF LOADING DOSE
     Route: 058
     Dates: start: 20150626, end: 20150626

REACTIONS (12)
  - Dizziness [Not Recovered/Not Resolved]
  - Visual impairment [Recovering/Resolving]
  - Paraesthesia [Recovering/Resolving]
  - Feeling abnormal [Not Recovered/Not Resolved]
  - Tremor [Not Recovered/Not Resolved]
  - Nausea [Recovered/Resolved]
  - Tunnel vision [Recovering/Resolving]
  - Nausea [Recovered/Resolved]
  - Sensory disturbance [Recovered/Resolved]
  - Disturbance in attention [Recovering/Resolving]
  - Nervousness [Recovering/Resolving]
  - Nausea [Recovering/Resolving]

NARRATIVE: CASE EVENT DATE: 201506
